FAERS Safety Report 13141515 (Version 2)
Quarter: 2017Q1

REPORT INFORMATION
  Report Type: Report from Study
  Country: US (occurrence: US)
  Receive Date: 20170123
  Receipt Date: 20170221
  Transmission Date: 20170428
  Serious: No
  Sender: FDA-Public Use
  Company Number: US-AMGEN-USASL2017005554

PATIENT
  Sex: Female

DRUGS (4)
  1. ENBREL [Suspect]
     Active Substance: ETANERCEPT
     Indication: RHEUMATOID ARTHRITIS
     Dosage: 50 MG, QWK
     Route: 058
     Dates: start: 201608
  2. PREDNISONE. [Concomitant]
     Active Substance: PREDNISONE
     Indication: PRURITUS
     Dosage: 5 MG, UNK
     Route: 065
  3. PREDNISONE. [Concomitant]
     Active Substance: PREDNISONE
     Indication: INJECTION SITE URTICARIA
     Dosage: 4 MG, QD
     Route: 048
     Dates: start: 201603, end: 201610
  4. PREDNISONE. [Concomitant]
     Active Substance: PREDNISONE
     Indication: PAIN

REACTIONS (3)
  - Pruritus [Recovered/Resolved]
  - Injection site urticaria [Not Recovered/Not Resolved]
  - Urticaria [Unknown]

NARRATIVE: CASE EVENT DATE: 2016
